FAERS Safety Report 16238776 (Version 1)
Quarter: 2019Q2

REPORT INFORMATION
  Report Type: Spontaneous
  Country: IT (occurrence: IT)
  Receive Date: 20190425
  Receipt Date: 20190425
  Transmission Date: 20190711
  Serious: Yes (Life-Threatening)
  Sender: FDA-Public Use
  Company Number: IT-TEVA-2019-IT-1041851

PATIENT
  Age: 64 Year
  Sex: Male
  Weight: 76 kg

DRUGS (1)
  1. OXALIPLATINO TEVA [Suspect]
     Active Substance: OXALIPLATIN

REACTIONS (9)
  - Gastrointestinal motility disorder [Unknown]
  - Confusional state [Unknown]
  - Loss of consciousness [Unknown]
  - Rash [Unknown]
  - Fall [Unknown]
  - Paraesthesia oral [Unknown]
  - Abdominal pain [Unknown]
  - Dry mouth [Unknown]
  - Feeling hot [Unknown]

NARRATIVE: CASE EVENT DATE: 20190404
